FAERS Safety Report 19900251 (Version 1)
Quarter: 2021Q3

REPORT INFORMATION
  Report Type: Spontaneous
  Country: IT (occurrence: IT)
  Receive Date: 20210930
  Receipt Date: 20210930
  Transmission Date: 20211014
  Serious: Yes (Hospitalization, Other)
  Sender: FDA-Public Use
  Company Number: IT-MYLANLABS-2021M1066786

PATIENT
  Age: 71 Year
  Sex: Male

DRUGS (6)
  1. ARGATROBAN. [Concomitant]
     Active Substance: ARGATROBAN
     Indication: ANTICOAGULANT THERAPY
     Dosage: UNK
  2. LOW MOLECULAR WEIGHT HEPARIN [Concomitant]
     Active Substance: UNSPECIFIED INGREDIENT
     Dosage: UNK
  3. FONDAPARINUX [Suspect]
     Active Substance: FONDAPARINUX
     Indication: ANTICOAGULANT THERAPY
     Dosage: UNK
  4. BIVALIRUDIN. [Concomitant]
     Active Substance: BIVALIRUDIN
     Dosage: UNK
  5. FONDAPARINUX [Suspect]
     Active Substance: FONDAPARINUX
     Indication: HEPARIN-INDUCED THROMBOCYTOPENIA
     Dosage: UNK, LOW DOSE
  6. FONDAPARINUX [Suspect]
     Active Substance: FONDAPARINUX
     Dosage: UNK, REINTRODUCED

REACTIONS (4)
  - Off label use [Unknown]
  - Shock haemorrhagic [Unknown]
  - Platelet count decreased [Recovering/Resolving]
  - Cross sensitivity reaction [Recovering/Resolving]
